FAERS Safety Report 9560371 (Version 1)
Quarter: 2013Q3

REPORT INFORMATION
  Report Type: Report from Study
  Country: KR (occurrence: KR)
  Receive Date: 20130927
  Receipt Date: 20130927
  Transmission Date: 20140515
  Serious: Yes (Death, Hospitalization)
  Sender: FDA-Public Use
  Company Number: KR-SANOFI-AVENTIS-2013SA093979

PATIENT
  Age: 57 Year
  Sex: Male

DRUGS (3)
  1. LANTUS [Suspect]
     Indication: DIABETES MELLITUS
     Dosage: DOSE:46 UNIT(S)
     Route: 058
  2. APIDRA [Suspect]
     Indication: DIABETES MELLITUS
     Dosage: DOSE: 14-14-14 UNIT DOSE:14 UNIT(S)
     Route: 058
  3. DIABEX [Suspect]
     Indication: DIABETES MELLITUS
     Route: 048

REACTIONS (2)
  - Gastric cancer [Fatal]
  - Hepatic cancer [Fatal]
